FAERS Safety Report 20960658 (Version 3)
Quarter: 2022Q3

REPORT INFORMATION
  Report Type: Spontaneous
  Country: None (occurrence: US)
  Receive Date: 20220615
  Receipt Date: 20220708
  Transmission Date: 20221027
  Serious: Yes (Other)
  Sender: FDA-Public Use
  Company Number: US-Acacia Pharma Limited-2129889

PATIENT
  Sex: Male

DRUGS (2)
  1. BARHEMSYS [Suspect]
     Active Substance: AMISULPRIDE
     Indication: Procedural nausea
     Route: 042
     Dates: start: 20220527
  2. DILAUDID [Concomitant]
     Active Substance: HYDROMORPHONE HYDROCHLORIDE
     Route: 042
     Dates: start: 20220527

REACTIONS (1)
  - Atrioventricular block complete [Not Recovered/Not Resolved]

NARRATIVE: CASE EVENT DATE: 20220527
